FAERS Safety Report 24226976 (Version 4)
Quarter: 2024Q4

REPORT INFORMATION
  Report Type: Report from Study
  Country: GB (occurrence: GB)
  Receive Date: 20240820
  Receipt Date: 20241007
  Transmission Date: 20250115
  Serious: Yes (Other)
  Sender: NOVARTIS
  Company Number: GB-002147023-NVSC2024GB162648

PATIENT
  Age: 53 Year
  Sex: Female

DRUGS (3)
  1. MAYZENT [Suspect]
     Active Substance: SIPONIMOD
     Indication: Secondary progressive multiple sclerosis
     Dosage: 2 MG, QD
     Route: 048
     Dates: start: 20240111
  2. MAYZENT [Suspect]
     Active Substance: SIPONIMOD
     Dosage: 1 MG, QD
     Route: 048
     Dates: start: 20240910
  3. ZIMMER [Concomitant]
     Indication: Product used for unknown indication
     Dosage: UNK
     Route: 065

REACTIONS (9)
  - Deep vein thrombosis [Unknown]
  - Pulmonary embolism [Unknown]
  - Lymphocyte count decreased [Not Recovered/Not Resolved]
  - Peripheral swelling [Unknown]
  - Bone pain [Unknown]
  - Chest pain [Unknown]
  - Back pain [Unknown]
  - Neck pain [Unknown]
  - Blood pressure fluctuation [Unknown]
